FAERS Safety Report 4406588-9 (Version None)
Quarter: 2004Q3

REPORT INFORMATION
  Report Type: 
  Country: None (occurrence: None)
  Receive Date: 20040723
  Receipt Date: 20040705
  Transmission Date: 20050211
  Serious: Yes (Other)
  Sender: FDA-Public Use
  Company Number: JP-GLAXOSMITHKLINE-B0338381A

PATIENT
  Age: 50 Year
  Sex: Female
  Weight: 43 kg

DRUGS (2)
  1. VALTREX [Suspect]
     Indication: HERPES ZOSTER
     Dosage: 500MG THREE TIMES PER DAY
     Route: 048
     Dates: start: 20040629, end: 20040702
  2. ARASENA-A [Concomitant]
     Route: 061

REACTIONS (8)
  - AFFECT LABILITY [None]
  - DIZZINESS [None]
  - DYSARTHRIA [None]
  - HALLUCINATION [None]
  - INSOMNIA [None]
  - LACRIMATION INCREASED [None]
  - OVERDOSE [None]
  - SPEECH DISORDER [None]
